FAERS Safety Report 9759627 (Version 1)
Quarter: 2013Q4

REPORT INFORMATION
  Report Type: Spontaneous
  Country: US (occurrence: US)
  Receive Date: 20131216
  Receipt Date: 20131216
  Transmission Date: 20140711
  Serious: No
  Sender: FDA-Public Use
  Company Number: US-GILEAD-2010-0028455

PATIENT
  Sex: Female

DRUGS (11)
  1. LETAIRIS [Suspect]
     Indication: PULMONARY ARTERIAL HYPERTENSION
     Route: 048
  2. AZURETTE [Concomitant]
  3. REVATIO [Concomitant]
  4. NEXIUM [Concomitant]
  5. KCL [Concomitant]
  6. FUROSEMIDE [Concomitant]
  7. FLECTOR PATCH [Concomitant]
  8. FLUTICASONE [Concomitant]
  9. VENTOLIN HFA [Concomitant]
  10. ZOLPIDEM [Concomitant]
  11. VOLTAREN [Concomitant]

REACTIONS (1)
  - Epistaxis [Not Recovered/Not Resolved]
